FAERS Safety Report 15943767 (Version 1)
Quarter: 2019Q1

REPORT INFORMATION
  Report Type: Spontaneous
  Country: US (occurrence: US)
  Receive Date: 20190210
  Receipt Date: 20190210
  Transmission Date: 20190417
  Serious: No
  Sender: FDA-Public Use
  Company Number: US-SHIRE-US201904352

PATIENT
  Sex: Male

DRUGS (1)
  1. ELAPRASE [Suspect]
     Active Substance: IDURSULFASE
     Indication: MUCOPOLYSACCHARIDOSIS II
     Dosage: 4 VIALS, 1X/WEEK
     Route: 042
     Dates: start: 20110930

REACTIONS (2)
  - Walking disability [Not Recovered/Not Resolved]
  - Psychiatric symptom [Not Recovered/Not Resolved]
